FAERS Safety Report 8831587 (Version 1)
Quarter: 2012Q4

REPORT INFORMATION
  Report Type: 
  Country: US (occurrence: US)
  Receive Date: 20121009
  Receipt Date: 20121009
  Transmission Date: 20130627
  Serious: Yes (Hospitalization)
  Sender: FDA-Public Use
  Company Number: US-GLAXOSMITHKLINE-A0988657A

PATIENT
  Age: 51 Year
  Sex: Female

DRUGS (1)
  1. FLOLAN [Suspect]
     Indication: PRODUCT USED FOR UNKNOWN INDICATION
     Dosage: 18NGKM Continuous
     Route: 042
     Dates: start: 20080617

REACTIONS (6)
  - Diarrhoea [Unknown]
  - Rash [Unknown]
  - Procedural complication [Unknown]
  - Headache [Unknown]
  - Pain in jaw [Unknown]
  - Pain [Unknown]
